FAERS Safety Report 7851371-5 (Version None)
Quarter: 2011Q4

REPORT INFORMATION
  Report Type: 
  Country: None (occurrence: None)
  Receive Date: 20111026
  Receipt Date: 20111019
  Transmission Date: 20120403
  Serious: Yes (Hospitalization)
  Sender: FDA-Public Use
  Company Number: FR-JNJFOC-20111009991

PATIENT
  Age: 45 Year
  Sex: Male

DRUGS (6)
  1. AMLODIPINE BESYLATE [Concomitant]
     Route: 048
  2. SORIATANE [Concomitant]
     Route: 048
  3. ZYPREXA [Concomitant]
     Route: 048
  4. STELARA [Suspect]
     Route: 058
     Dates: start: 20110919
  5. CANDESARTAN CILEXETIL AND HYDROCHLOROTHIAZIDE [Concomitant]
     Route: 048
  6. STELARA [Suspect]
     Indication: PSORIASIS
     Route: 058
     Dates: start: 20110823

REACTIONS (2)
  - HALLUCINATION, AUDITORY [None]
  - CONDITION AGGRAVATED [None]
